FAERS Safety Report 6007710-3 (Version None)
Quarter: 2008Q4

REPORT INFORMATION
  Report Type: 
  Country: None (occurrence: None)
  Receive Date: 20081217
  Receipt Date: 20080505
  Transmission Date: 20090506
  Serious: No
  Sender: FDA-Public Use
  Company Number: US-ASTRAZENECA-2008UW10301

PATIENT
  Age: 82 Year
  Sex: Female

DRUGS (18)
  1. CRESTOR [Suspect]
     Route: 048
  2. NYSTATIN [Suspect]
  3. ZETIA [Concomitant]
  4. Q-10 [Concomitant]
  5. TRICOR [Concomitant]
  6. COUMADIN [Concomitant]
     Dosage: 2.5 MG ALT 5 MG QD
  7. TOPROL-XL [Concomitant]
     Route: 048
  8. FUROSEMIDE [Concomitant]
  9. NORVASC [Concomitant]
  10. MICARDIS [Concomitant]
  11. VITAMIN B COMPLEX CAP [Concomitant]
  12. FOLTX [Concomitant]
  13. IRON [Concomitant]
  14. EVISTA [Concomitant]
  15. FOSAMAX [Concomitant]
     Dosage: 1 TABLET
  16. CA CITRATE [Concomitant]
  17. SYNTHROID [Concomitant]
  18. COSAMIN [Concomitant]

REACTIONS (2)
  - APPLICATION SITE RASH [None]
  - MYALGIA [None]
